FAERS Safety Report 8190559-3 (Version None)
Quarter: 2012Q1

REPORT INFORMATION
  Report Type: 
  Country: None (occurrence: None)
  Receive Date: 20120307
  Receipt Date: 20120302
  Transmission Date: 20120608
  Serious: Yes (Hospitalization)
  Sender: FDA-Public Use
  Company Number: FR-ROCHE-1045645

PATIENT
  Sex: Female

DRUGS (3)
  1. NORFLOXACIN [Suspect]
     Indication: PYELONEPHRITIS
     Route: 048
     Dates: start: 20120131, end: 20120202
  2. ROCEPHIN [Suspect]
     Indication: PYELONEPHRITIS
     Route: 042
     Dates: start: 20120202, end: 20120203
  3. ANTADYS [Suspect]
     Indication: DYSMENORRHOEA
     Route: 048
     Dates: start: 20120129, end: 20120130

REACTIONS (1)
  - RENAL FAILURE ACUTE [None]
